FAERS Safety Report 11342708 (Version 1)
Quarter: 2015Q3

REPORT INFORMATION
  Report Type: Spontaneous
  Country: CA (occurrence: CA)
  Receive Date: 20150805
  Receipt Date: 20150805
  Transmission Date: 20151125
  Serious: Yes (Hospitalization)
  Sender: FDA-Public Use
  Company Number: CA-ACTELION-A-US2015-121825

PATIENT
  Age: 62 Year
  Sex: Female
  Weight: 41.95 kg

DRUGS (12)
  1. FLOVENT [Concomitant]
     Active Substance: FLUTICASONE PROPIONATE
  2. SYNTHROID [Concomitant]
     Active Substance: LEVOTHYROXINE SODIUM
  3. CARIPUL [Suspect]
     Active Substance: EPOPROSTENOL
     Indication: PULMONARY ARTERIAL HYPERTENSION
     Dosage: 2 NG/KG, PER MIN
     Route: 042
     Dates: start: 20150518
  4. RABEPRAZOLE [Concomitant]
     Active Substance: RABEPRAZOLE
  5. LORATADINE. [Concomitant]
     Active Substance: LORATADINE
  6. ASA [Concomitant]
     Active Substance: ASPIRIN
  7. LOTRIDERM [Concomitant]
     Active Substance: BETAMETHASONE DIPROPIONATE\CLOTRIMAZOLE
  8. TIOTROPIUM [Concomitant]
     Active Substance: TIOTROPIUM
  9. RAMIPRIL. [Concomitant]
     Active Substance: RAMIPRIL
  10. SALVENT [Concomitant]
  11. TRACLEER [Suspect]
     Active Substance: BOSENTAN
     Indication: PULMONARY ARTERIAL HYPERTENSION
     Route: 048
  12. ADCIRCA [Concomitant]
     Active Substance: TADALAFIL

REACTIONS (2)
  - White blood cell count increased [Unknown]
  - Medical device complication [Unknown]

NARRATIVE: CASE EVENT DATE: 20150720
